FAERS Safety Report 9258238 (Version 2)
Quarter: 2013Q3

REPORT INFORMATION
  Report Type: Spontaneous
  Country: FR (occurrence: FR)
  Receive Date: 20130426
  Receipt Date: 20130923
  Transmission Date: 20140515
  Serious: Yes (Hospitalization)
  Sender: FDA-Public Use
  Company Number: FR-PFIZER INC-2013124446

PATIENT
  Age: 67 Year
  Sex: Male

DRUGS (7)
  1. TAHOR [Suspect]
     Dosage: UNK
  2. CARDENSIEL [Suspect]
     Dosage: UNK
     Route: 048
  3. COVERSYL [Suspect]
     Dosage: UNK
     Route: 048
  4. PLAVIX [Concomitant]
  5. ESOMEPRAZOLE [Concomitant]
  6. ALLOPURINOL [Concomitant]
  7. ASPEGIC [Concomitant]

REACTIONS (5)
  - Interstitial lung disease [Not Recovered/Not Resolved]
  - Acute respiratory distress syndrome [Recovering/Resolving]
  - Pulmonary oedema [Unknown]
  - Emphysema [Unknown]
  - Gouty arthritis [Unknown]
